FAERS Safety Report 4369032-6 (Version None)
Quarter: 2004Q2

REPORT INFORMATION
  Report Type: 
  Country: None (occurrence: None)
  Receive Date: 20040525
  Receipt Date: 20040511
  Transmission Date: 20050107
  Serious: Yes (Hospitalization, Other)
  Sender: FDA-Public Use
  Company Number: EMADSS2003002804

PATIENT
  Age: 30 Year
  Sex: Male
  Weight: 91 kg

DRUGS (7)
  1. REMICADE [Suspect]
     Indication: ASTHMA
     Dosage: 5MG/KG, 1 IN 1 AS NECESSARY, INTRAVENOUS
     Route: 042
     Dates: start: 20021220, end: 20030523
  2. SOLUPRED (PREDNISOLONE SODIUM SULFOBENZOATE) UNSPECIFIED [Suspect]
     Indication: ASTHMA
     Dosage: 80 MG, 1 IN 1 DAY, ORAL
     Route: 048
     Dates: start: 20021118
  3. SINGULAIR [Concomitant]
  4. METFORMIN HCL [Concomitant]
  5. OMEPRAZOLE [Concomitant]
  6. FLUTICASONE PROPIONATE [Concomitant]
  7. FORMOTEROL (FORMOTEROL) [Concomitant]

REACTIONS (4)
  - ASTHMA [None]
  - CONDITION AGGRAVATED [None]
  - DIABETES MELLITUS [None]
  - HYPOGLYCAEMIA [None]
